FAERS Safety Report 5577342-X (Version None)
Quarter: 2007Q4

REPORT INFORMATION
  Report Type: 
  Country: None (occurrence: None)
  Receive Date: 20071130
  Receipt Date: 20070723
  Transmission Date: 20080405
  Serious: No
  Sender: FDA-Public Use
  Company Number: US200707006248

PATIENT
  Age: 62 Year
  Sex: Male

DRUGS (6)
  1. BYETTA [Suspect]
     Indication: TYPE 2 DIABETES MELLITUS
     Dosage: 5 U, 2/D, SUBCUTANEOUS
     Route: 058
     Dates: start: 20070713
  2. LEVEMIR                  (INSULIN DETEMIR) [Concomitant]
  3. GLIPIZIDE [Concomitant]
  4. PREDNISONE TAB [Concomitant]
  5. PROGRAF                    (TACROLIMUS) [Concomitant]
  6. RAPAMUNE [Concomitant]

REACTIONS (2)
  - BLOOD GLUCOSE INCREASED [None]
  - DRUG EFFECT DECREASED [None]
